FAERS Safety Report 13308996 (Version 1)
Quarter: 2017Q1

REPORT INFORMATION
  Report Type: Spontaneous
  Country: CN (occurrence: CN)
  Receive Date: 20170308
  Receipt Date: 20170308
  Transmission Date: 20170428
  Serious: Yes (Hospitalization, Other)
  Sender: FDA-Public Use
  Company Number: CN-GILEAD-2017-0261280

PATIENT
  Age: 70 Year
  Sex: Female

DRUGS (5)
  1. AMINOPHENAZONE W/CAFFEINE/PHENACETIN/PHENOBAR [Suspect]
     Active Substance: AMINOPHENAZONE\CAFFEINE\PHENACETIN\PHENOBARBITAL
     Indication: PROCTALGIA
  2. HEPSERA [Suspect]
     Active Substance: ADEFOVIR DIPIVOXIL
     Indication: HEPATITIS B
     Dosage: 10 MG, QD
     Route: 048
     Dates: start: 20110601, end: 20161216
  3. AMINOPHENAZONE W/CAFFEINE/PHENACETIN/PHENOBAR [Suspect]
     Active Substance: AMINOPHENAZONE\CAFFEINE\PHENACETIN\PHENOBARBITAL
     Indication: VULVOVAGINAL PAIN
     Dosage: UNK
     Route: 048
     Dates: start: 20151208, end: 20161216
  4. AMINOPHENAZONE W/CAFFEINE/PHENACETIN/PHENOBAR [Suspect]
     Active Substance: AMINOPHENAZONE\CAFFEINE\PHENACETIN\PHENOBARBITAL
     Indication: BACK PAIN
  5. AMINOPHENAZONE W/CAFFEINE/PHENACETIN/PHENOBAR [Suspect]
     Active Substance: AMINOPHENAZONE\CAFFEINE\PHENACETIN\PHENOBARBITAL
     Indication: PAIN

REACTIONS (8)
  - Proctalgia [Recovering/Resolving]
  - Osteoporosis [Unknown]
  - Vulvovaginal pain [Recovering/Resolving]
  - Nasopharyngitis [Unknown]
  - Back pain [Recovering/Resolving]
  - Fanconi syndrome acquired [Recovering/Resolving]
  - Oedema peripheral [Unknown]
  - Pain [Recovering/Resolving]

NARRATIVE: CASE EVENT DATE: 20161116
